FAERS Safety Report 10070518 (Version 1)
Quarter: 2014Q2

REPORT INFORMATION
  Report Type: Spontaneous
  Country: US (occurrence: US)
  Receive Date: 20140410
  Receipt Date: 20140410
  Transmission Date: 20141212
  Serious: No
  Sender: FDA-Public Use
  Company Number: US-BAYER-2014-045669

PATIENT
  Sex: Female

DRUGS (4)
  1. ALEVE CAPLET [Suspect]
  2. LYRICA [Concomitant]
     Dosage: UNK
     Route: 048
     Dates: start: 20140103
  3. TEGRETOL [Concomitant]
     Dosage: 200 MG, TID
     Route: 048
     Dates: start: 20140103
  4. TRAMADOL HYDROCHLORIDE [Concomitant]
     Dosage: 50 MG, BID
     Route: 048
     Dates: start: 20140103

REACTIONS (1)
  - Drug hypersensitivity [None]
